FAERS Safety Report 14774175 (Version 1)
Quarter: 2018Q2

REPORT INFORMATION
  Report Type: Spontaneous
  Country: US (occurrence: US)
  Receive Date: 20180418
  Receipt Date: 20180418
  Transmission Date: 20180711
  Serious: Yes (Hospitalization)
  Sender: FDA-Public Use
  Company Number: US-ARBOR PHARMACEUTICALS, LLC-US-2018ARB000462

PATIENT
  Age: 33 Year
  Sex: Female

DRUGS (1)
  1. GABAPENTIN ENACARBIL [Suspect]
     Active Substance: GABAPENTIN ENACARBIL
     Indication: PRODUCT USED FOR UNKNOWN INDICATION
     Dosage: 24 G, SINGLE

REACTIONS (5)
  - Overdose [Unknown]
  - Nervous system disorder [Unknown]
  - Tachycardia [Unknown]
  - Generalised tonic-clonic seizure [Unknown]
  - Metabolic acidosis [Unknown]
